FAERS Safety Report 9552149 (Version 3)
Quarter: 2013Q4

REPORT INFORMATION
  Report Type: Report from Study
  Country: CA (occurrence: CA)
  Receive Date: 20130925
  Receipt Date: 20131130
  Transmission Date: 20140711
  Serious: Yes (Death, Hospitalization, Other)
  Sender: FDA-Public Use
  Company Number: PHHY2012CA099468

PATIENT
  Age: 84 Year
  Sex: Female

DRUGS (6)
  1. SANDOSTATIN (OCTREOTIDE ACETATE) [Suspect]
     Indication: CARCINOID TUMOUR OF THE SMALL BOWEL
     Dosage: UNK UKN, TID
     Route: 058
     Dates: start: 20121017
  2. SANDOSTATIN LAR [Suspect]
     Indication: CARCINOID TUMOUR OF THE SMALL BOWEL
     Dosage: 30 MG, EVERY 3 WEEKS
     Route: 030
     Dates: start: 20121031
  3. SANDOSTATIN LAR [Suspect]
     Dosage: 30 MG, EVERY 3 WEEKS
     Route: 030
     Dates: start: 20130828
  4. SANDOSTATIN LAR [Suspect]
     Dosage: 30 MG, EVERY 3 WEEKS
     Route: 030
     Dates: start: 201309
  5. ZARTAN [Concomitant]
     Dosage: UNK UKN, UNK
  6. ANTI-HISTAMINE [Concomitant]
     Dosage: UNK UKN, UNK

REACTIONS (5)
  - Death [Fatal]
  - Delirium [Unknown]
  - Diarrhoea [Unknown]
  - Pigmentation disorder [Unknown]
  - Joint swelling [Unknown]
